FAERS Safety Report 5275638-2 (Version None)
Quarter: 2007Q1

REPORT INFORMATION
  Report Type: 
  Country: None (occurrence: None)
  Receive Date: 20070326
  Receipt Date: 20070313
  Transmission Date: 20070707
  Serious: Yes (Death)
  Sender: FDA-Public Use
  Company Number: AU-SANOFI-SYNTHELABO-A01200701958

PATIENT
  Age: 37 Year
  Sex: Male

DRUGS (2)
  1. STILNOX [Suspect]
     Dosage: 1 DF
     Route: 048
     Dates: start: 20070120
  2. ALCOHOL [Suspect]
     Route: 048
     Dates: start: 20070208

REACTIONS (3)
  - AMNESIA [None]
  - ROAD TRAFFIC ACCIDENT [None]
  - TOXICOLOGIC TEST ABNORMAL [None]
